FAERS Safety Report 5308794-8 (Version None)
Quarter: 2007Q2

REPORT INFORMATION
  Report Type: 
  Country: None (occurrence: None)
  Receive Date: 20070426
  Receipt Date: 20070417
  Transmission Date: 20071010
  Serious: Yes (Hospitalization)
  Sender: FDA-Public Use
  Company Number: US-ABBOTT-07P-163-0365343-00

PATIENT
  Sex: Female
  Weight: 68.1 kg

DRUGS (2)
  1. HUMIRA [Suspect]
     Indication: RHEUMATOID ARTHRITIS
     Dosage: SYRINGE
     Route: 058
     Dates: start: 20060701, end: 20061001
  2. HUMIRA [Suspect]
     Dosage: PEN
     Route: 058
     Dates: start: 20070417

REACTIONS (2)
  - ACCIDENTAL EXPOSURE [None]
  - INTERVERTEBRAL DISC DISORDER [None]
